FAERS Safety Report 11196618 (Version 2)
Quarter: 2016Q4

REPORT INFORMATION
  Report Type: Report from Study
  Country: US (occurrence: US)
  Receive Date: 20150617
  Receipt Date: 20161020
  Transmission Date: 20170206
  Serious: Yes (Other)
  Sender: FDA-Public Use
  Company Number: US-BAYER-2015-273766

PATIENT
  Age: 41 Year
  Sex: Female
  Weight: 56.7 kg

DRUGS (11)
  1. XARELTO [Interacting]
     Active Substance: RIVAROXABAN
     Indication: MAY-THURNER SYNDROME
  2. ACETYLSALICYLIC ACID({=100 MG) [Interacting]
     Active Substance: ASPIRIN
     Indication: MAY-THURNER SYNDROME
  3. ACETYLSALICYLIC ACID({=100 MG) [Suspect]
     Active Substance: ASPIRIN
     Indication: THROMBOSIS PROPHYLAXIS
     Dosage: 81 MG, QD
     Route: 048
     Dates: start: 20150514
  4. XARELTO [Interacting]
     Active Substance: RIVAROXABAN
     Indication: THROMBOSIS PROPHYLAXIS
     Dosage: 20 MG, QD
     Route: 048
  5. XARELTO [Interacting]
     Active Substance: RIVAROXABAN
     Indication: RENAL VEIN COMPRESSION
  6. PLAVIX [Interacting]
     Active Substance: CLOPIDOGREL BISULFATE
     Indication: THROMBOSIS PROPHYLAXIS
     Dosage: UNK
     Route: 065
  7. PLAVIX [Interacting]
     Active Substance: CLOPIDOGREL BISULFATE
     Indication: RENAL VEIN COMPRESSION
  8. ACETYLSALICYLIC ACID({=100 MG) [Interacting]
     Active Substance: ASPIRIN
     Indication: RENAL VEIN COMPRESSION
  9. XARELTO [Interacting]
     Active Substance: RIVAROXABAN
     Indication: THROMBOSIS PROPHYLAXIS
     Dosage: 15 MG, BID
     Route: 048
     Dates: start: 20150514
  10. XARELTO [Interacting]
     Active Substance: RIVAROXABAN
     Indication: THROMBOSIS PROPHYLAXIS
  11. PLAVIX [Interacting]
     Active Substance: CLOPIDOGREL BISULFATE
     Indication: MAY-THURNER SYNDROME

REACTIONS (4)
  - Blood urine present [Not Recovered/Not Resolved]
  - Off label use [Unknown]
  - Urinary tract infection [Not Recovered/Not Resolved]
  - Product use issue [Unknown]

NARRATIVE: CASE EVENT DATE: 20150517
